FAERS Safety Report 6026535-6 (Version None)
Quarter: 2008Q4

REPORT INFORMATION
  Report Type: 
  Country: None (occurrence: None)
  Receive Date: 20081222
  Receipt Date: 20081030
  Transmission Date: 20090506
  Serious: No
  Sender: FDA-Public Use
  Company Number: US-WYE-H06631808

PATIENT
  Age: 70 Year
  Sex: Female
  Weight: 73.09 kg

DRUGS (5)
  1. PRISTIQ [Suspect]
     Indication: DEPRESSION
     Dosage: 50 MG 1X PER 1 DAY, ORAL ; 100 MG 1X PER 1 DAY, ORAL ; 50 MG 2X PER 1 DAY, ORAL
     Route: 048
     Dates: start: 20081010, end: 20081028
  2. PRISTIQ [Suspect]
     Indication: DEPRESSION
     Dosage: 50 MG 1X PER 1 DAY, ORAL ; 100 MG 1X PER 1 DAY, ORAL ; 50 MG 2X PER 1 DAY, ORAL
     Route: 048
     Dates: start: 20081029, end: 20081029
  3. PRISTIQ [Suspect]
     Indication: DEPRESSION
     Dosage: 50 MG 1X PER 1 DAY, ORAL ; 100 MG 1X PER 1 DAY, ORAL ; 50 MG 2X PER 1 DAY, ORAL
     Route: 048
     Dates: start: 20081030
  4. VALIUM [Concomitant]
  5. MULTI-VITAMINS [Concomitant]

REACTIONS (3)
  - DRUG INEFFECTIVE [None]
  - HEADACHE [None]
  - INSOMNIA [None]
